FAERS Safety Report 20477650 (Version 2)
Quarter: 2022Q1

REPORT INFORMATION
  Report Type: Spontaneous
  Country: IT (occurrence: IT)
  Receive Date: 20220216
  Receipt Date: 20220308
  Transmission Date: 20220423
  Serious: Yes (Other)
  Sender: FDA-Public Use
  Company Number: IT-AMGEN-ITASP2022024292

PATIENT

DRUGS (7)
  1. PROLIA [Suspect]
     Active Substance: DENOSUMAB
     Indication: Osteoporosis
     Dosage: UNK
     Route: 065
  2. ADALIMUMAB [Suspect]
     Active Substance: ADALIMUMAB
     Indication: Rheumatic disorder
     Dosage: UNK
     Route: 065
  3. ADALIMUMAB [Suspect]
     Active Substance: ADALIMUMAB
     Indication: Connective tissue disorder
  4. METHOTREXATE [Concomitant]
     Active Substance: METHOTREXATE
  5. LEFLUNOMIDE [Concomitant]
     Active Substance: LEFLUNOMIDE
  6. SULFASALAZINE [Concomitant]
     Active Substance: SULFASALAZINE
  7. HYDROXYCHLOROQUINE [Concomitant]
     Active Substance: HYDROXYCHLOROQUINE
     Dosage: UNK

REACTIONS (11)
  - Osteonecrosis of jaw [Unknown]
  - Adverse event [Unknown]
  - Cardiovascular disorder [Unknown]
  - Red blood cell count decreased [Unknown]
  - Hepatic enzyme increased [Unknown]
  - Laboratory test abnormal [Unknown]
  - Osteoporosis [Unknown]
  - Rheumatic disorder [Unknown]
  - Infection [Unknown]
  - Connective tissue disorder [Unknown]
  - Injection site reaction [Unknown]
